FAERS Safety Report 17118674 (Version 2)
Quarter: 2022Q1

REPORT INFORMATION
  Report Type: Spontaneous
  Country: US (occurrence: US)
  Receive Date: 20191206
  Receipt Date: 20220208
  Transmission Date: 20220423
  Serious: No
  Sender: FDA-Public Use
  Company Number: US-009507513-1911USA011818

PATIENT
  Age: 60 Year
  Sex: Female

DRUGS (20)
  1. BELSOMRA [Suspect]
     Active Substance: SUVOREXANT
     Indication: Insomnia
     Dosage: TABLET OF 20 MG, ONCE EVERY NIGHT
     Route: 048
     Dates: start: 201907, end: 201907
  2. AMBIEN [Suspect]
     Active Substance: ZOLPIDEM TARTRATE
     Indication: Insomnia
     Dosage: UNK
     Route: 048
     Dates: start: 2019
  3. AMBIEN CR [Suspect]
     Active Substance: ZOLPIDEM TARTRATE
     Indication: Insomnia
  4. KLONOPIN [Concomitant]
     Active Substance: CLONAZEPAM
  5. NEURONTIN [Concomitant]
     Active Substance: GABAPENTIN
  6. REMERON [Concomitant]
     Active Substance: MIRTAZAPINE
  7. SEROQUEL [Concomitant]
     Active Substance: QUETIAPINE FUMARATE
  8. TRAZODONE HYDROCHLORIDE [Concomitant]
     Active Substance: TRAZODONE HYDROCHLORIDE
  9. REQUIP [Concomitant]
     Active Substance: ROPINIROLE HYDROCHLORIDE
  10. CLONIDINE [Concomitant]
     Active Substance: CLONIDINE
  11. SYNTHROID [Concomitant]
     Active Substance: LEVOTHYROXINE SODIUM
  12. PRILOSEC [Concomitant]
     Active Substance: OMEPRAZOLE MAGNESIUM
  13. ASPIRIN [Concomitant]
     Active Substance: ASPIRIN
     Dosage: 325 MG
  14. LOSARTAN POTASSIUM [Concomitant]
     Active Substance: LOSARTAN POTASSIUM
  15. ZYRTEC [Concomitant]
     Active Substance: CETIRIZINE HYDROCHLORIDE
  16. LEVOXYL [Concomitant]
     Active Substance: LEVOTHYROXINE SODIUM
  17. NEXIUM 24HR [Concomitant]
     Active Substance: ESOMEPRAZOLE MAGNESIUM
  18. ZANAFLEX [Concomitant]
     Active Substance: TIZANIDINE HYDROCHLORIDE
  19. ATORVASTATIN [Concomitant]
     Active Substance: ATORVASTATIN
  20. ZOFRAN [Concomitant]
     Active Substance: ONDANSETRON HYDROCHLORIDE

REACTIONS (9)
  - Insomnia [Not Recovered/Not Resolved]
  - Stress fracture [Not Recovered/Not Resolved]
  - Stress [Not Recovered/Not Resolved]
  - Fatigue [Not Recovered/Not Resolved]
  - Cardiac disorder [Not Recovered/Not Resolved]
  - Chest pain [Not Recovered/Not Resolved]
  - Computerised tomogram head [Not Recovered/Not Resolved]
  - Drug ineffective [Not Recovered/Not Resolved]
  - Product dose omission issue [Unknown]

NARRATIVE: CASE EVENT DATE: 20190701
